FAERS Safety Report 6186059-2 (Version None)
Quarter: 2009Q2

REPORT INFORMATION
  Report Type: 
  Country: None (occurrence: None)
  Receive Date: 20090511
  Receipt Date: 20090501
  Transmission Date: 20091009
  Serious: Yes (Other)
  Sender: FDA-Public Use
  Company Number: IE-MEDIMMUNE-MEDI-0007808

PATIENT
  Sex: Female
  Weight: 5 kg

DRUGS (41)
  1. SYNAGIS [Suspect]
     Indication: CARDIAC DISORDER
     Route: 030
     Dates: end: 20081222
  2. SYNAGIS [Suspect]
  3. CIPROFLOXACIN [Suspect]
  4. CEFTRIAXONE [Concomitant]
     Route: 042
     Dates: start: 20081217, end: 20081222
  5. GENTAMICIN [Concomitant]
     Route: 042
     Dates: start: 20081217, end: 20081229
  6. TEICOPLANIN [Concomitant]
     Route: 042
     Dates: start: 20081222, end: 20081226
  7. VANCOMYCIN HCL [Concomitant]
     Route: 042
     Dates: start: 20081226, end: 20090108
  8. KAPSOVIT [Concomitant]
  9. FERROUS SULFATE TAB [Concomitant]
  10. ALFACALCIDOL [Concomitant]
  11. MAGNESIUM GLYCEROPHOSPHATE [Concomitant]
     Route: 048
  12. FUROSEMIDE [Concomitant]
  13. FUROSEMIDE [Concomitant]
  14. ACETYLSALICYLIC ACID [Concomitant]
  15. CALCIUM GLUCONATE [Concomitant]
  16. POTASSIUM CHLORIDE [Concomitant]
  17. CLONIDINE [Concomitant]
     Route: 048
  18. CLONIDINE [Concomitant]
  19. MORPHINE SULFATE [Concomitant]
     Route: 042
  20. MORPHINE SULFATE [Concomitant]
  21. MILRINONE [Concomitant]
     Route: 042
     Dates: end: 20090105
  22. TRICLOFOS [Concomitant]
  23. PARACETAMOL [Concomitant]
     Route: 048
  24. CIPROFLOXACIN [Concomitant]
     Route: 048
     Dates: start: 20081222, end: 20090101
  25. LINEZOLID [Concomitant]
     Route: 048
     Dates: start: 20081230, end: 20081231
  26. MEROPENEM [Concomitant]
     Dates: start: 20081226, end: 20081226
  27. MEROPENEM [Concomitant]
     Dates: start: 20090101
  28. ERYTHROMYCIN ETHYLSUCCINATE [Concomitant]
     Route: 048
     Dates: start: 20081229
  29. RANITIDINE [Concomitant]
     Dates: end: 20081223
  30. RANITIDINE [Concomitant]
     Dates: start: 20081228, end: 20090102
  31. SPIRONOLACTONE [Concomitant]
     Dates: end: 20090101
  32. ACETAZOLAMIDE [Concomitant]
     Dates: start: 20081225, end: 20081225
  33. KETAMINE HCL [Concomitant]
     Route: 040
     Dates: start: 20081218, end: 20081218
  34. KETAMINE HCL [Concomitant]
     Route: 040
     Dates: start: 20081220, end: 20081220
  35. KETAMINE HCL [Concomitant]
     Route: 040
     Dates: start: 20081221, end: 20081221
  36. KETAMINE HCL [Concomitant]
     Route: 040
     Dates: start: 20081226, end: 20081226
  37. KETAMINE HCL [Concomitant]
     Route: 040
     Dates: start: 20081229, end: 20081229
  38. KETAMINE HCL [Concomitant]
     Route: 040
     Dates: start: 20081230, end: 20081230
  39. PHYTOMENADIONE [Concomitant]
     Route: 040
     Dates: start: 20090101, end: 20090101
  40. PHYTOMENADIONE [Concomitant]
     Route: 040
     Dates: start: 20090102, end: 20090102
  41. PHYTOMENADIONE [Concomitant]
     Route: 040
     Dates: start: 20090103, end: 20090103

REACTIONS (2)
  - ALANINE AMINOTRANSFERASE INCREASED [None]
  - ASPARTATE AMINOTRANSFERASE INCREASED [None]
